FAERS Safety Report 19222330 (Version 1)
Quarter: 2021Q2

REPORT INFORMATION
  Report Type: Spontaneous
  Country: NZ (occurrence: NZ)
  Receive Date: 20210506
  Receipt Date: 20210506
  Transmission Date: 20210717
  Serious: Yes (Other)
  Sender: FDA-Public Use
  Company Number: NZ-CMP PHARMA-2021CMP00006

PATIENT
  Age: 70 Year
  Sex: Male

DRUGS (2)
  1. PREDNISONE. [Concomitant]
     Active Substance: PREDNISONE
     Indication: INFECTION
     Route: 065
  2. TRIAMCINOLONE [Suspect]
     Active Substance: TRIAMCINOLONE
     Indication: VISUAL IMPAIRMENT
     Dosage: UNK, ONCE

REACTIONS (1)
  - Eye infection toxoplasmal [Recovering/Resolving]
